FAERS Safety Report 13360632 (Version 13)
Quarter: 2018Q1

REPORT INFORMATION
  Report Type: Spontaneous
  Country: US (occurrence: US)
  Receive Date: 20170322
  Receipt Date: 20180118
  Transmission Date: 20180508
  Serious: Yes (Other)
  Sender: FDA-Public Use
  Company Number: US-ACTELION-A-NJ2017-151359

PATIENT
  Age: 52 Year
  Sex: Female
  Weight: 114.29 kg

DRUGS (4)
  1. DULOXETINE HCL [Suspect]
     Active Substance: DULOXETINE HYDROCHLORIDE
     Indication: PRODUCT USED FOR UNKNOWN INDICATION
     Dosage: UNK
     Route: 065
     Dates: start: 20170602, end: 20170613
  2. LEFLUNOMIDE. [Concomitant]
     Active Substance: LEFLUNOMIDE
  3. ADEMPAS [Concomitant]
     Active Substance: RIOCIGUAT
     Dosage: UNK
     Route: 065
     Dates: start: 20170906
  4. OPSUMIT [Suspect]
     Active Substance: MACITENTAN
     Indication: PULMONARY ARTERIAL HYPERTENSION
     Dosage: 10 MG, QD
     Route: 048

REACTIONS (23)
  - Fatigue [Unknown]
  - Skin burning sensation [Unknown]
  - Pain [Unknown]
  - Irritability [Unknown]
  - Flatulence [Unknown]
  - Rash pruritic [Not Recovered/Not Resolved]
  - Peripheral swelling [Unknown]
  - Limb injury [Recovering/Resolving]
  - Rash [Not Recovered/Not Resolved]
  - Feeling abnormal [Unknown]
  - Cough [Unknown]
  - Rash generalised [Unknown]
  - Anxiety [Not Recovered/Not Resolved]
  - Dyspnoea [Unknown]
  - Musculoskeletal chest pain [Unknown]
  - Hypertension [Unknown]
  - Dyspnoea exertional [Unknown]
  - Alopecia [Unknown]
  - Sinus disorder [Unknown]
  - Fluid retention [Unknown]
  - Rib fracture [Unknown]
  - Depression [Not Recovered/Not Resolved]
  - Constipation [Unknown]

NARRATIVE: CASE EVENT DATE: 20170602
